FAERS Safety Report 16403483 (Version 1)
Quarter: 2019Q2

REPORT INFORMATION
  Report Type: Spontaneous
  Country: ES (occurrence: ES)
  Receive Date: 20190607
  Receipt Date: 20190607
  Transmission Date: 20190711
  Serious: Yes (Hospitalization)
  Sender: FDA-Public Use
  Company Number: ES-ACCORD-131869

PATIENT
  Age: 71 Year
  Sex: Female
  Weight: 38 kg

DRUGS (5)
  1. URBASON [Interacting]
     Active Substance: METHYLPREDNISOLONE
     Indication: RHEUMATOID ARTHRITIS
     Dosage: STRENGTH: 4 MG, 30 TABLETS
     Route: 048
     Dates: start: 2010, end: 20190208
  2. FOLIC ACID. [Concomitant]
     Active Substance: FOLIC ACID
     Indication: RHEUMATOID ARTHRITIS
     Route: 048
  3. PROLIA [Interacting]
     Active Substance: DENOSUMAB
     Indication: OSTEOPOROSIS
     Dosage: STRENGTH: 60 MG,  1 PRE-FILLED SYRINGE OF 1 ML
     Route: 058
     Dates: start: 2018
  4. MASTICAL D [Concomitant]
     Indication: OSTEOPOROSIS
     Dosage: STRENGTH:500 MG/800 IU, 30 TABLETS
     Route: 048
  5. METHOTREXATE. [Suspect]
     Active Substance: METHOTREXATE
     Indication: RHEUMATOID ARTHRITIS
     Route: 048
     Dates: start: 20100401, end: 20190119

REACTIONS (2)
  - Influenza [Recovered/Resolved]
  - Drug interaction [Unknown]

NARRATIVE: CASE EVENT DATE: 20190118
